FAERS Safety Report 4442611-3 (Version None)
Quarter: 2004Q3

REPORT INFORMATION
  Report Type: 
  Country: None (occurrence: None)
  Receive Date: 20040903
  Receipt Date: 20040720
  Transmission Date: 20050211
  Serious: Yes (Other)
  Sender: FDA-Public Use
  Company Number: 2004UW15182

PATIENT
  Age: 80 Year
  Sex: Female
  Weight: 72.5755 kg

DRUGS (7)
  1. CRESTOR [Suspect]
     Indication: BLOOD CHOLESTEROL INCREASED
     Dosage: 10 MG PO
     Route: 048
  2. FOSAMAX [Concomitant]
  3. DIOVAN [Concomitant]
  4. BETOPTIC S [Concomitant]
  5. VITAMIN [Concomitant]
  6. CITRACAL [Concomitant]
  7. LIPITOR [Concomitant]

REACTIONS (3)
  - MUSCULOSKELETAL STIFFNESS [None]
  - NEUROMA [None]
  - PAIN [None]
